FAERS Safety Report 7618812-X (Version None)
Quarter: 2011Q3

REPORT INFORMATION
  Report Type: 
  Country: None (occurrence: None)
  Receive Date: 20110718
  Receipt Date: 20110706
  Transmission Date: 20111222
  Serious: Yes (Other)
  Sender: FDA-Public Use
  Company Number: FR-VERTEX PHARMACEUTICALS INC.-AE-2011-000353

PATIENT
  Sex: Male
  Weight: 108 kg

DRUGS (9)
  1. TOCO [Concomitant]
     Indication: INSULIN RESISTANCE
     Route: 048
     Dates: start: 20100829
  2. ACETAMINOPHEN [Concomitant]
     Indication: BACK PAIN
     Route: 048
  3. VX-950 [Suspect]
     Indication: HEPATITIS C
     Route: 048
     Dates: start: 20110523
  4. METFORMIN HCL [Concomitant]
     Indication: DIABETES MELLITUS
     Route: 048
     Dates: start: 20071102
  5. PEGASYS [Concomitant]
     Indication: HEPATITIS C
     Route: 058
     Dates: start: 20110523
  6. COPEGUS [Concomitant]
     Indication: HEPATITIS C
     Route: 046
     Dates: start: 20110523
  7. CYMBALTA [Concomitant]
     Indication: DEPRESSION
     Route: 048
  8. AMARYL [Concomitant]
     Indication: DIABETES MELLITUS
     Route: 048
     Dates: start: 20071102
  9. APROVEL [Concomitant]
     Indication: HYPERTENSION
     Route: 048
     Dates: start: 20080601

REACTIONS (2)
  - ERYSIPELAS [None]
  - THROMBOCYTOPENIA [None]
